FAERS Safety Report 20688277 (Version 1)
Quarter: 2022Q2

REPORT INFORMATION
  Report Type: Spontaneous
  Country: CA (occurrence: CA)
  Receive Date: 20220408
  Receipt Date: 20220408
  Transmission Date: 20220721
  Serious: Yes (Hospitalization)
  Sender: FDA-Public Use
  Company Number: CA-TEVA-2022-CA-2023856

PATIENT
  Age: 46 Year
  Sex: Female
  Weight: 49 kg

DRUGS (31)
  1. FLUDARABINE [Suspect]
     Active Substance: FLUDARABINE PHOSPHATE
     Indication: Bone marrow transplant
     Route: 065
  2. BUSULFAN [Suspect]
     Active Substance: BUSULFAN
     Indication: Bone marrow transplant
     Route: 065
  3. CYCLOPHOSPHAMIDE [Suspect]
     Active Substance: CYCLOPHOSPHAMIDE
     Indication: Bone marrow transplant
     Route: 065
  4. MESNA [Suspect]
     Active Substance: MESNA
     Indication: Bone marrow transplant
     Route: 065
  5. THIOTEPA [Suspect]
     Active Substance: THIOTEPA
     Indication: Bone marrow transplant
     Route: 065
  6. CURCUMIN/CURCUMA LONGA RHIZOME [Concomitant]
  7. DEXAMETHASONE [Concomitant]
     Active Substance: DEXAMETHASONE
  8. EMEND [Concomitant]
     Active Substance: APREPITANT
  9. ENOXAPARIN [Concomitant]
     Active Substance: ENOXAPARIN
  10. ESTRADIOL [Concomitant]
     Active Substance: ESTRADIOL
  11. FLUCONAZOLE [Concomitant]
     Active Substance: FLUCONAZOLE
  12. FUROSEMIDE [Concomitant]
     Active Substance: FUROSEMIDE
  13. FUSIDIC ACID [Concomitant]
     Active Substance: FUSIDIC ACID
  14. TEA [Concomitant]
     Active Substance: TEA LEAF
  15. LANSOPRAZOLE [Concomitant]
     Active Substance: LANSOPRAZOLE
  16. LORAZEPAM [Concomitant]
     Active Substance: LORAZEPAM
     Route: 065
  17. NYSTATIN [Concomitant]
     Active Substance: NYSTATIN
  18. MAGNESIUM [Concomitant]
     Active Substance: MAGNESIUM
  19. MUPIROCIN [Concomitant]
     Active Substance: MUPIROCIN
  20. OLANZAPINE [Concomitant]
     Active Substance: OLANZAPINE
  21. OMEGA 3-6 [Concomitant]
  22. ONDANSETRON [Concomitant]
     Active Substance: ONDANSETRON
  23. PHENYTOIN [Concomitant]
     Active Substance: PHENYTOIN
  24. POLYETHYLENE GLYCOL [Concomitant]
     Active Substance: POLYETHYLENE GLYCOL
  25. PROCHLORPERAZINE [Concomitant]
     Active Substance: PROCHLORPERAZINE
  26. PROGESTERONE [Concomitant]
     Active Substance: PROGESTERONE
  27. URSODIOL [Concomitant]
     Active Substance: URSODIOL
  28. VALACYCLOVIR [Concomitant]
     Active Substance: VALACYCLOVIR HYDROCHLORIDE
  29. VITAMIN C [Concomitant]
     Active Substance: ASCORBIC ACID
  30. VITAMIN D [Concomitant]
     Active Substance: VITAMIN D NOS
  31. ZOPICLONE [Concomitant]
     Active Substance: ZOPICLONE

REACTIONS (1)
  - Febrile neutropenia [Recovered/Resolved]
